FAERS Safety Report 12002130 (Version 1)
Quarter: 2016Q1

REPORT INFORMATION
  Report Type: Spontaneous
  Country: US (occurrence: US)
  Receive Date: 20160204
  Receipt Date: 20160204
  Transmission Date: 20160526
  Serious: No
  Sender: FDA-Public Use
  Company Number: US-UCBSA-2015000818

PATIENT

DRUGS (2)
  1. HYDROCODONE POLISTIREX AND CHLORPHENIRAMINE POLISTIREX PENNKINETIC [Suspect]
     Active Substance: CHLORPHENIRAMINE MALEATE\HYDROCODONE BITARTRATE
     Dosage: 10 MG IN 5 ML
  2. HYDROCODONE POLISTIREX AND CHLORPHENIRAMINE POLISTIREX PENNKINETIC [Suspect]
     Active Substance: CHLORPHENIRAMINE MALEATE\HYDROCODONE BITARTRATE
     Indication: COUGH
     Dosage: 8 MG IN 5 ML

REACTIONS (4)
  - Product quality issue [None]
  - Incorrect product formulation administered [None]
  - Drug ineffective [Unknown]
  - Drug dispensing error [None]
